FAERS Safety Report 7935773-4 (Version None)
Quarter: 2011Q4

REPORT INFORMATION
  Report Type: 
  Country: None (occurrence: None)
  Receive Date: 20111123
  Receipt Date: 20111117
  Transmission Date: 20120403
  Serious: Yes (Other)
  Sender: FDA-Public Use
  Company Number: PHHY2011IE78961

PATIENT
  Sex: Female

DRUGS (11)
  1. ACETAMINOPHEN [Concomitant]
     Dosage: 2 PRN
  2. PRILOSEC [Concomitant]
     Dosage: 20 MG, QD
  3. LIPITOR [Concomitant]
     Dosage: 10 MG, QN
  4. MOTILIUM [Concomitant]
     Dosage: 10 MG, TID
  5. ARICEPT [Concomitant]
     Dosage: 10 MG, QD
  6. ASPIRIN [Concomitant]
     Dosage: 75 MG, QD
  7. SPIRIVA [Concomitant]
     Dosage: 18 UG, 2 PUFFS QD
  8. LANTUS [Concomitant]
     Dosage: 10 UNITS SC BID
  9. DILTIAZEM HCL [Concomitant]
     Dosage: 120 MG, QD
  10. LEVOTHYROXINE SODIUM [Concomitant]
     Dosage: 125 UG, QD
  11. ONBREZ [Suspect]
     Indication: CHRONIC OBSTRUCTIVE PULMONARY DISEASE
     Dosage: 2 PUFFS ONCE PER DAY

REACTIONS (3)
  - ATRIAL FIBRILLATION [None]
  - FALL [None]
  - FEMORAL NECK FRACTURE [None]
